FAERS Safety Report 8121826-7 (Version None)
Quarter: 2012Q1

REPORT INFORMATION
  Report Type: 
  Country: None (occurrence: None)
  Receive Date: 20120207
  Receipt Date: 20120207
  Transmission Date: 20120608
  Serious: Yes (Hospitalization)
  Sender: FDA-Public Use
  Company Number: None

PATIENT
  Age: 61 Year
  Sex: Male
  Weight: 72.7 kg

DRUGS (2)
  1. IFOSFAMIDE/MESNA KIT [Suspect]
     Dosage: 3000 MG EVERY DAY IV
     Route: 042
     Dates: start: 20090615, end: 20090617
  2. DOXORUBICIN HCL [Suspect]
     Indication: COLON CANCER
     Dosage: 50 MG OTHER IV
     Route: 042
     Dates: start: 20090615, end: 20090617

REACTIONS (1)
  - NEUTROPENIA [None]
